FAERS Safety Report 20912733 (Version 4)
Quarter: 2023Q1

REPORT INFORMATION
  Report Type: Report from Study
  Country: CN (occurrence: CN)
  Receive Date: 20220603
  Receipt Date: 20230301
  Transmission Date: 20230418
  Serious: Yes (Hospitalization)
  Sender: FDA-Public Use
  Company Number: CN-KARYOPHARM-2022KPT000613

PATIENT
  Age: 55 Year
  Sex: Female
  Weight: 59.5 kg

DRUGS (3)
  1. SELINEXOR [Suspect]
     Active Substance: SELINEXOR
     Indication: Plasma cell myeloma
     Dosage: 100 MG, WEEKLY ON DAYS 1, 8, 15, 22, AND 29 OF A 35 CYCLE
     Route: 048
     Dates: start: 20220411, end: 20220523
  2. BORTEZOMIB [Suspect]
     Active Substance: BORTEZOMIB
     Indication: Plasma cell myeloma
     Dosage: 2.15 MG, WEEKLY ON DAYS 1, 8, 15, AND 22 OF EACH 35-DAY CYCLE
     Route: 058
     Dates: start: 20220411, end: 20220523
  3. DEXAMETHASONE [Suspect]
     Active Substance: DEXAMETHASONE
     Indication: Plasma cell myeloma
     Dosage: 20 MG, 2X/WEEK ON DAYS 1, 2, 8, 9, 15, 16, 22, 23, 29, AND 30 OF EACH 35-DAY CYCLE
     Route: 048
     Dates: start: 20220411, end: 20220523

REACTIONS (2)
  - Platelet count decreased [Recovering/Resolving]
  - Varicella [Recovered/Resolved]

NARRATIVE: CASE EVENT DATE: 20220523
